FAERS Safety Report 9176967 (Version 2)
Quarter: 2013Q2

REPORT INFORMATION
  Report Type: Spontaneous
  Country: US (occurrence: None)
  Receive Date: 20120531
  Receipt Date: 20130130
  Transmission Date: 20140414
  Serious: Yes (Hospitalization, Other)
  Sender: FDA-Public Use
  Company Number: US201201007644

PATIENT
  Sex: Female

DRUGS (5)
  1. BYETTA (EXENATIDE) PEN.DISPOSABLE [Suspect]
     Route: 058
  2. METFORMIN (METFORMIN) [Concomitant]
  3. DIOVAN (VALSARTAN) [Concomitant]
  4. CRESTOR (ROSUVASTATIN CALCIUM) [Concomitant]
  5. ZETIA (EZETIMIBE) [Concomitant]

REACTIONS (1)
  - Renal failure [None]
